FAERS Safety Report 10166286 (Version 2)
Quarter: 2014Q3

REPORT INFORMATION
  Report Type: Spontaneous
  Country: DE (occurrence: DE)
  Receive Date: 20140512
  Receipt Date: 20140716
  Transmission Date: 20150326
  Serious: Yes (Other)
  Sender: FDA-Public Use
  Company Number: DE-RANBAXY-2014RR-80840

PATIENT
  Age: 74 Year
  Sex: Male
  Weight: 110 kg

DRUGS (2)
  1. CEFUROX BASICS 500 MG TABLETTEN [Suspect]
     Active Substance: CEFUROXIME
     Indication: BRONCHITIS
     Dosage: 8 TABLETS (1-0-1)
     Route: 048
     Dates: end: 20140419
  2. LOSARTAN [Concomitant]
     Active Substance: LOSARTAN
     Indication: HYPERTENSION
     Dosage: 50 MG DAILY (1-0-0)
     Route: 065

REACTIONS (4)
  - Tinnitus [Recovered/Resolved]
  - Deafness [Recovered/Resolved]
  - Abdominal pain [Unknown]
  - Diarrhoea [Unknown]

NARRATIVE: CASE EVENT DATE: 2014
